FAERS Safety Report 4416556-9 (Version None)
Quarter: 2004Q2

REPORT INFORMATION
  Report Type: 
  Country: None (occurrence: None)
  Receive Date: 20040630
  Receipt Date: 20040610
  Transmission Date: 20050107
  Serious: Yes (Other)
  Sender: FDA-Public Use
  Company Number: ENTC2004-0111

PATIENT
  Age: 68 Year
  Sex: Male

DRUGS (9)
  1. STALEVO 100 [Suspect]
     Indication: PARKINSON'S DISEASE
     Dosage: SEE IMAGE
     Route: 048
     Dates: start: 20040401, end: 20040401
  2. STALEVO 100 [Suspect]
     Indication: PARKINSON'S DISEASE
     Dosage: SEE IMAGE
     Route: 048
     Dates: start: 20040501
  3. AMANTADINE HCL [Concomitant]
  4. REQUIP [Concomitant]
  5. NORVASC [Concomitant]
  6. ULTRACET [Concomitant]
  7. CELEBREX [Concomitant]
  8. CARDURA [Concomitant]
  9. EFFEXOR [Concomitant]

REACTIONS (3)
  - BRUXISM [None]
  - DRUG INEFFECTIVE [None]
  - PAIN IN JAW [None]
